FAERS Safety Report 23986114 (Version 3)
Quarter: 2024Q3

REPORT INFORMATION
  Report Type: Spontaneous
  Country: DE (occurrence: DE)
  Receive Date: 20240618
  Receipt Date: 20240712
  Transmission Date: 20241017
  Serious: Yes (Other)
  Sender: NOVARTIS
  Company Number: DE-002147023-NVSC2024DE125113

PATIENT
  Sex: Male
  Weight: 31.6 kg

DRUGS (1)
  1. KYMRIAH [Suspect]
     Active Substance: TISAGENLECLEUCEL
     Indication: Acute lymphocytic leukaemia refractory
     Dosage: UNK, ONCE/SINGLE (T CELLS TOTAL 1X109, CAR-T+ 3X 106 /KG BODY WEIGHT)
     Route: 042
     Dates: start: 20230303, end: 20230303

REACTIONS (3)
  - Acute lymphocytic leukaemia recurrent [Recovered/Resolved]
  - Acute lymphocytic leukaemia recurrent [Recovering/Resolving]
  - Minimal residual disease [Unknown]

NARRATIVE: CASE EVENT DATE: 20230731
